FAERS Safety Report 17040862 (Version 1)
Quarter: 2019Q4

REPORT INFORMATION
  Report Type: Spontaneous
  Country: CN (occurrence: CN)
  Receive Date: 20191118
  Receipt Date: 20191118
  Transmission Date: 20200122
  Serious: Yes (Other)
  Sender: FDA-Public Use
  Company Number: CN-SA-2019SA315572

PATIENT
  Age: 55 Year
  Sex: Male

DRUGS (6)
  1. TROPISETRON [Concomitant]
     Active Substance: TROPISETRON
     Indication: VOMITING
     Dosage: 40 MG, QD
     Route: 041
     Dates: start: 201910
  2. FLUOROURACIL. [Suspect]
     Active Substance: FLUOROURACIL
     Dosage: 3380.000 MG, 1X
     Route: 042
     Dates: start: 20191024, end: 20191024
  3. ELOXATIN [Suspect]
     Active Substance: OXALIPLATIN
     Indication: CHEMOTHERAPY
     Dosage: 100 MG, 1X
     Route: 041
     Dates: start: 20191024, end: 20191024
  4. CALCIUM FOLINATE [Suspect]
     Active Substance: LEUCOVORIN CALCIUM
     Indication: CHEMOTHERAPY
     Dosage: 0.600 G, 1X
     Route: 041
     Dates: start: 20191024, end: 20191024
  5. LANSOPRAZOLE. [Concomitant]
     Active Substance: LANSOPRAZOLE
     Indication: GASTROINTESTINAL DISORDER
     Dosage: 40 MG, QD
     Route: 041
     Dates: start: 201910
  6. FLUOROURACIL. [Suspect]
     Active Substance: FLUOROURACIL
     Indication: CHEMOTHERAPY
     Dosage: 600 MG, 1X
     Route: 041
     Dates: start: 20191024, end: 20191024

REACTIONS (3)
  - Neutropenia [Recovering/Resolving]
  - Gastrointestinal disorder [Recovering/Resolving]
  - White blood cell count decreased [Recovering/Resolving]

NARRATIVE: CASE EVENT DATE: 20191027
